APPROVED DRUG PRODUCT: AMLODIPINE BESYLATE AND VALSARTAN
Active Ingredient: AMLODIPINE BESYLATE; VALSARTAN
Strength: EQ 5MG BASE;320MG
Dosage Form/Route: TABLET;ORAL
Application: A090011 | Product #003 | TE Code: AB
Applicant: STRIDES PHARMA INTERNATIONAL AG
Approved: Mar 28, 2013 | RLD: No | RS: No | Type: RX